FAERS Safety Report 6359393-0 (Version None)
Quarter: 2009Q3

REPORT INFORMATION
  Report Type: 
  Country: None (occurrence: None)
  Receive Date: 20090917
  Receipt Date: 20090908
  Transmission Date: 20100115
  Serious: Yes (Death, Life-Threatening)
  Sender: FDA-Public Use
  Company Number: AU-NOVOPROD-291589

PATIENT
  Age: 1 Day
  Sex: Male
  Weight: 2.7 kg

DRUGS (2)
  1. NOVOSEVEN [Suspect]
     Indication: HAEMOSTASIS
     Dosage: .4 MG, UNK
     Dates: start: 20040402
  2. NOVOSEVEN [Suspect]
     Dosage: .4 MG, UNK
     Dates: start: 20040402

REACTIONS (2)
  - CEREBRAL INFARCTION [None]
  - SHUNT OCCLUSION [None]
